FAERS Safety Report 6297260-1 (Version None)
Quarter: 2009Q3

REPORT INFORMATION
  Report Type: 
  Country: None (occurrence: None)
  Receive Date: 20090805
  Receipt Date: 20070807
  Transmission Date: 20100115
  Serious: Yes (Other)
  Sender: FDA-Public Use
  Company Number: US-ASTRAZENECA-2007UW01996

PATIENT
  Age: 21525 Day
  Sex: Male
  Weight: 108.4 kg

DRUGS (3)
  1. SEROQUEL [Suspect]
     Indication: DEPRESSION
     Dosage: 50 MG - 100 MG
     Route: 048
     Dates: start: 20020624, end: 20021201
  2. SEROQUEL [Suspect]
     Dosage: 25-50 MG
     Route: 048
     Dates: start: 20020624
  3. SEROQUEL [Suspect]
     Dosage: 50 MG - 100 MG
     Route: 048
     Dates: start: 20021201

REACTIONS (4)
  - DIABETIC NEPHROPATHY [None]
  - PANCREATITIS [None]
  - RENAL DISORDER [None]
  - TYPE 1 DIABETES MELLITUS [None]
